FAERS Safety Report 16148487 (Version 1)
Quarter: 2019Q2

REPORT INFORMATION
  Report Type: Report from Study
  Country: US (occurrence: US)
  Receive Date: 20190402
  Receipt Date: 20190402
  Transmission Date: 20190711
  Serious: Yes (Hospitalization)
  Sender: FDA-Public Use
  Company Number: PHHO2019US003474

PATIENT
  Sex: Female
  Weight: 60 kg

DRUGS (5)
  1. OLAPARIB. [Suspect]
     Active Substance: OLAPARIB
     Dosage: UNK
     Route: 065
     Dates: start: 20190213
  2. ZOPHREN [Suspect]
     Active Substance: ONDANSETRON
     Indication: PRODUCT USED FOR UNKNOWN INDICATION
     Route: 065
  3. OLAPARIB. [Suspect]
     Active Substance: OLAPARIB
     Dosage: 300 MG, BID
     Route: 048
     Dates: start: 20190117
  4. OLAPARIB. [Suspect]
     Active Substance: OLAPARIB
     Indication: OVARIAN EPITHELIAL CANCER
     Dosage: 300 MG, BID  (TOTAL DOSE: 15900 MG) (7 DAYS CYCLE)
     Route: 048
     Dates: start: 20181018
  5. ONALESPIB [Suspect]
     Active Substance: ONALESPIB
     Indication: OVARIAN EPITHELIAL CANCER
     Dosage: 40 MG/M2, OVER1 HOUR ON DAYS 1, 2, 8, 9, 15 AND 16 IN 28-DAYS CYCLE
     Route: 042

REACTIONS (3)
  - Constipation [Unknown]
  - Large intestinal obstruction [Recovered/Resolved with Sequelae]
  - Abdominal pain [Recovered/Resolved with Sequelae]

NARRATIVE: CASE EVENT DATE: 20190220
